FAERS Safety Report 26138178 (Version 2)
Quarter: 2025Q4

REPORT INFORMATION
  Report Type: Spontaneous
  Country: US (occurrence: US)
  Receive Date: 20251210
  Receipt Date: 20251231
  Transmission Date: 20260118
  Serious: No
  Sender: ROCHE
  Company Number: US-ROCHE-10000452006

PATIENT
  Sex: Male

DRUGS (2)
  1. ERIVEDGE [Suspect]
     Active Substance: VISMODEGIB
     Indication: Basal cell carcinoma
     Dosage: STRENGTH : 150 MG
     Dates: start: 202509
  2. ERIVEDGE [Suspect]
     Active Substance: VISMODEGIB
     Dosage: STRENGTH : 150 MG
     Dates: start: 202509

REACTIONS (3)
  - Myalgia [Unknown]
  - Muscle spasms [Unknown]
  - Muscle spasms [Unknown]
